FAERS Safety Report 6610027-7 (Version None)
Quarter: 2010Q1

REPORT INFORMATION
  Report Type: 
  Country: None (occurrence: None)
  Receive Date: 20100302
  Receipt Date: 20100226
  Transmission Date: 20100710
  Serious: Yes (Hospitalization)
  Sender: FDA-Public Use
  Company Number: CHNY2010JP00454

PATIENT
  Age: 23 Year
  Sex: Female

DRUGS (1)
  1. FERROUS SULFATE (NCH) [Suspect]
     Dosage: 3000 MG, QD
     Route: 048

REACTIONS (4)
  - COAGULOPATHY [None]
  - LIVER DISORDER [None]
  - METAL POISONING [None]
  - OVERDOSE [None]
